FAERS Safety Report 16215465 (Version 1)
Quarter: 2019Q2

REPORT INFORMATION
  Report Type: Spontaneous
  Country: US (occurrence: US)
  Receive Date: 20190418
  Receipt Date: 20190418
  Transmission Date: 20190711
  Serious: Yes (Other)
  Sender: FDA-Public Use
  Company Number: None

PATIENT
  Age: 47 Year
  Sex: Female
  Weight: 84.11 kg

DRUGS (17)
  1. VALIUM [Concomitant]
     Active Substance: DIAZEPAM
  2. LASIX [Concomitant]
     Active Substance: FUROSEMIDE
  3. PROVERA [Concomitant]
     Active Substance: MEDROXYPROGESTERONE ACETATE
  4. POTASSIUM CHLORIDE. [Concomitant]
     Active Substance: POTASSIUM CHLORIDE
  5. PROGRAF [Concomitant]
     Active Substance: TACROLIMUS\TACROLIMUS ANHYDROUS
  6. IRON [Concomitant]
     Active Substance: IRON
  7. WARFARIN SODIUM. [Concomitant]
     Active Substance: WARFARIN SODIUM
  8. ZETIA [Concomitant]
     Active Substance: EZETIMIBE
  9. AMLODIPINE [Concomitant]
     Active Substance: AMLODIPINE BESYLATE
  10. MAGNISIUM OXIDE [Concomitant]
  11. ADALAT [Concomitant]
     Active Substance: NIFEDIPINE
  12. LOSARTAN. [Concomitant]
     Active Substance: LOSARTAN
  13. MYFORTIC [Concomitant]
     Active Substance: MYCOPHENOLATE SODIUM
  14. ZOCOR [Concomitant]
     Active Substance: SIMVASTATIN
  15. VITAMIN D NOS [Concomitant]
     Active Substance: VITAMIN D NOS
  16. CAPECITABINE. [Suspect]
     Active Substance: CAPECITABINE
     Indication: BREAST CANCER
     Route: 048
     Dates: start: 20190328
  17. PREDNISONE. [Concomitant]
     Active Substance: PREDNISONE

REACTIONS (1)
  - Rash [None]
